FAERS Safety Report 7532459-5 (Version None)
Quarter: 2011Q2

REPORT INFORMATION
  Report Type: 
  Country: None (occurrence: None)
  Receive Date: 20110608
  Receipt Date: 20110526
  Transmission Date: 20111010
  Serious: Yes (Hospitalization)
  Sender: FDA-Public Use
  Company Number: PHHY2011JP09705

PATIENT
  Sex: Female

DRUGS (1)
  1. VOLTAREN [Suspect]
     Route: 067

REACTIONS (3)
  - METASTASES TO BONE [None]
  - INCORRECT ROUTE OF DRUG ADMINISTRATION [None]
  - CONCOMITANT DISEASE PROGRESSION [None]
